FAERS Safety Report 20427702 (Version 1)
Quarter: 2022Q1

REPORT INFORMATION
  Report Type: Report from Study
  Country: US (occurrence: US)
  Receive Date: 20220204
  Receipt Date: 20220204
  Transmission Date: 20220423
  Serious: No
  Sender: FDA-Public Use
  Company Number: US-EXELIXIS-CABO-21042602

PATIENT
  Sex: Male

DRUGS (12)
  1. CABOMETYX [Suspect]
     Active Substance: CABOZANTINIB S-MALATE
     Indication: Renal cancer
     Dosage: 60 MG, QD
     Route: 048
     Dates: start: 20210618, end: 20210707
  2. ELIQUIS [Concomitant]
     Active Substance: APIXABAN
  3. ASPIRIN [Concomitant]
     Active Substance: ASPIRIN
  4. CALTRATE WITH VITAMIN D [Concomitant]
     Active Substance: CALCIUM CARBONATE\CHOLECALCIFEROL
  5. COLACE [Concomitant]
     Active Substance: DOCUSATE SODIUM
  6. DEXAMETHASONE [Concomitant]
     Active Substance: DEXAMETHASONE
  7. KEPPRA [Concomitant]
     Active Substance: LEVETIRACETAM
  8. LISINOPRIL [Concomitant]
     Active Substance: LISINOPRIL
  9. MIRALAX [Concomitant]
     Active Substance: POLYETHYLENE GLYCOL 3350
  10. PEPCID [Concomitant]
     Active Substance: FAMOTIDINE
  11. TOPROL XL [Concomitant]
     Active Substance: METOPROLOL SUCCINATE
  12. VITAMIN B6 [Concomitant]
     Active Substance: PYRIDOXINE HYDROCHLORIDE

REACTIONS (4)
  - Pain in jaw [Unknown]
  - Thrombosis [Unknown]
  - Stomatitis [Unknown]
  - Fatigue [Unknown]
